FAERS Safety Report 9217632 (Version 1)
Quarter: 2013Q2

REPORT INFORMATION
  Report Type: Spontaneous
  Country: US (occurrence: US)
  Receive Date: 20130408
  Receipt Date: 20130408
  Transmission Date: 20140414
  Serious: Yes (Other)
  Sender: FDA-Public Use
  Company Number: US-BAYER-2013-044163

PATIENT
  Age: 84 Year
  Sex: Male
  Weight: 85.28 kg

DRUGS (5)
  1. XARELTO [Suspect]
     Indication: CEREBROVASCULAR ACCIDENT PROPHYLAXIS
     Route: 048
     Dates: start: 201212, end: 20130111
  2. XARELTO [Suspect]
     Indication: ATRIAL FIBRILLATION
  3. ACETYLSALICYLIC ACID({=100 MG) [Suspect]
     Indication: ATRIAL FIBRILLATION
     Dosage: 82 MG, UNK
     Route: 048
  4. ACETYLSALICYLIC ACID({=100 MG) [Suspect]
     Indication: ATRIAL FIBRILLATION
     Dosage: 82 MG, BID
     Route: 048
  5. SOTALOL [Concomitant]
     Indication: ATRIAL FIBRILLATION
     Dosage: 80 MG, UNK
     Route: 048
     Dates: start: 201212

REACTIONS (1)
  - Haematuria [Recovered/Resolved]
